FAERS Safety Report 25246086 (Version 2)
Quarter: 2025Q2

REPORT INFORMATION
  Report Type: Spontaneous
  Country: EE (occurrence: EE)
  Receive Date: 20250428
  Receipt Date: 20250528
  Transmission Date: 20250716
  Serious: Yes (Other)
  Sender: PFIZER
  Company Number: EE-PFIZER INC-PV202500049673

PATIENT
  Age: 70 Year
  Sex: Female

DRUGS (1)
  1. XELJANZ [Suspect]
     Active Substance: TOFACITINIB CITRATE
     Indication: Rheumatoid arthritis
     Dosage: 5 MG, 2X/DAY
     Dates: start: 202210

REACTIONS (4)
  - Hypertensive crisis [Recovered/Resolved]
  - Deafness [Unknown]
  - Pneumonia [Unknown]
  - Hypertension [Not Recovered/Not Resolved]
